FAERS Safety Report 18970542 (Version 1)
Quarter: 2021Q1

REPORT INFORMATION
  Report Type: Report from Study
  Country: CA (occurrence: CA)
  Receive Date: 20210305
  Receipt Date: 20210305
  Transmission Date: 20210420
  Serious: Yes (Other)
  Sender: FDA-Public Use
  Company Number: CA-JNJFOC-20200145063

PATIENT
  Age: 35 Year
  Sex: Male
  Weight: 81.8 kg

DRUGS (2)
  1. REMICADE [Suspect]
     Active Substance: INFLIXIMAB
     Indication: CROHN^S DISEASE
     Dosage: ON 26?FEB?2021, THE PATIENT RECEIVED 90TH INFUSION OF 600 MG
     Route: 042
     Dates: start: 20100413
  2. REMICADE [Suspect]
     Active Substance: INFLIXIMAB
     Dosage: THE PATIENT HAD TAKEN LAST INFUSION ON 24?JAN?2020
     Route: 042
     Dates: start: 20110126, end: 20200304

REACTIONS (5)
  - Influenza [Recovered/Resolved]
  - Abdominal pain [Unknown]
  - Vomiting [Recovered/Resolved]
  - Tooth infection [Recovered/Resolved]
  - Nausea [Recovered/Resolved]

NARRATIVE: CASE EVENT DATE: 20200125
